FAERS Safety Report 9510350 (Version 2)
Quarter: 2013Q3

REPORT INFORMATION
  Report Type: Spontaneous
  Country: US (occurrence: US)
  Receive Date: 20130909
  Receipt Date: 20130909
  Transmission Date: 20140515
  Serious: Yes (Hospitalization)
  Sender: FDA-Public Use
  Company Number: US-BRISTOL-MYERS SQUIBB COMPANY-17440074

PATIENT
  Age: 54 Year
  Sex: Male
  Weight: 86.17 kg

DRUGS (4)
  1. ABILIFY [Suspect]
     Indication: AUTISM
     Dosage: DOSE INCREASE TO ABILIFY 20 MG.
     Dates: start: 200409, end: 201208
  2. ABILIFY [Suspect]
     Indication: SCHIZOPHRENIA, PARANOID TYPE
     Dosage: DOSE INCREASE TO ABILIFY 20 MG.
     Dates: start: 200409, end: 201208
  3. ABILIFY [Suspect]
     Indication: BIPOLAR DISORDER
     Dosage: DOSE INCREASE TO ABILIFY 20 MG.
     Dates: start: 200409, end: 201208
  4. RISPERDAL [Concomitant]
     Dosage: WEANED OFF FOR 4WEEKS

REACTIONS (2)
  - Drug ineffective [Unknown]
  - Gait disturbance [Unknown]
